FAERS Safety Report 21627967 (Version 3)
Quarter: 2022Q4

REPORT INFORMATION
  Report Type: Spontaneous
  Country: US (occurrence: US)
  Receive Date: 20221122
  Receipt Date: 20221230
  Transmission Date: 20230113
  Serious: No
  Sender: FDA-Public Use
  Company Number: US-BAYER-2022A160197

PATIENT
  Age: 93 Year
  Sex: Male

DRUGS (4)
  1. MIRALAX [Suspect]
     Active Substance: POLYETHYLENE GLYCOL 3350
     Indication: Gastrointestinal disorder
     Dosage: 1 PACK IN A DAY
     Route: 048
     Dates: start: 20221114
  2. MIRALAX [Suspect]
     Active Substance: POLYETHYLENE GLYCOL 3350
     Indication: Gastrointestinal disorder
     Dosage: 17 GRAMS
     Route: 048
     Dates: start: 20221124
  3. KLONOPIN [Concomitant]
     Active Substance: CLONAZEPAM
     Dosage: UNK
  4. CITRUCEL [Concomitant]
     Active Substance: METHYLCELLULOSE (4000 MPA.S)

REACTIONS (3)
  - Abdominal pain [Not Recovered/Not Resolved]
  - Therapeutic product effect incomplete [None]
  - Diarrhoea [Unknown]

NARRATIVE: CASE EVENT DATE: 20221114
